FAERS Safety Report 22344443 (Version 1)
Quarter: 2023Q2

REPORT INFORMATION
  Report Type: Report from Study
  Country: EG (occurrence: EG)
  Receive Date: 20230519
  Receipt Date: 20230519
  Transmission Date: 20230722
  Serious: Yes (Other)
  Sender: FDA-Public Use
  Company Number: EG-002147023-NVSC2023EG113197

PATIENT
  Sex: Male

DRUGS (9)
  1. GILENYA [Suspect]
     Active Substance: FINGOLIMOD HYDROCHLORIDE
     Indication: Multiple sclerosis
     Dosage: 0.5 MG, QD (STARTED 4 YEARS AND HALF AND STOPPED AFTER 3 MONTHS FROM TAKING GILENYA) (ONE CAP PER DA
     Route: 048
  2. OMEGA 3 [Concomitant]
     Active Substance: CAPSAICIN
     Indication: Vitamin supplementation
     Dosage: 1 DOSAGE FORM, QD (ONE CAP PER DAY)
     Route: 065
     Dates: start: 2016
  3. VITAMIN E [Concomitant]
     Active Substance: .ALPHA.-TOCOPHEROL
     Indication: Vitamin supplementation
     Dosage: 1 DOSAGE FORM, QD (ONE CAP PER DAY)
     Route: 065
     Dates: start: 2016
  4. B-COM [Concomitant]
     Indication: Liver disorder
     Dosage: 1 DOSAGE FORM, QD (ONE CAP PER DAY)
     Route: 065
     Dates: start: 2016
  5. B-COM [Concomitant]
     Indication: Renal disorder
  6. B-COM [Concomitant]
     Indication: Liver disorder
     Dosage: 1 DOSAGE FORM, QW (IM INJECTION) (ONE AMP PER WEEK)
     Route: 030
     Dates: start: 2016
  7. B-COM [Concomitant]
     Indication: Renal disorder
  8. SELENIUM [Concomitant]
     Active Substance: SELENIUM
     Indication: Liver disorder
     Dosage: 1 DOSAGE FORM, QD, (ONE CAP PER DAY)
     Route: 065
     Dates: start: 2016
  9. SELENIUM [Concomitant]
     Active Substance: SELENIUM
     Indication: Renal disorder

REACTIONS (3)
  - Optic nerve disorder [Not Recovered/Not Resolved]
  - Red blood cell count decreased [Not Recovered/Not Resolved]
  - Mean cell haemoglobin decreased [Not Recovered/Not Resolved]

NARRATIVE: CASE EVENT DATE: 20180101
